FAERS Safety Report 14990511 (Version 1)
Quarter: 2018Q2

REPORT INFORMATION
  Report Type: Spontaneous
  Country: US (occurrence: US)
  Receive Date: 20180520
  Receipt Date: 20180520
  Transmission Date: 20180711
  Serious: Yes (Life-Threatening, Hospitalization)
  Sender: FDA-Public Use
  Company Number: None

PATIENT
  Age: 53 Year
  Sex: Female
  Weight: 63.5 kg

DRUGS (9)
  1. PREGABALIN 150 MG [Concomitant]
     Active Substance: PREGABALIN
  2. CLONIDINE 0.1 MG [Concomitant]
     Active Substance: CLONIDINE
  3. METOPROLOL 100 MG [Concomitant]
     Active Substance: METOPROLOL
  4. LISINOPRIL 20 MG [Concomitant]
     Active Substance: LISINOPRIL
  5. EMPAGLIFLOZIN [Suspect]
     Active Substance: EMPAGLIFLOZIN
     Indication: TYPE 2 DIABETES MELLITUS
     Route: 048
  6. SERTRALINE [Concomitant]
     Active Substance: SERTRALINE HYDROCHLORIDE
  7. INSULIN GLARGINE 50 UNITS [Concomitant]
  8. METOCLOPRAMIDE 10 MG [Concomitant]
     Active Substance: METOCLOPRAMIDE
  9. TEMAZEPAM 30 MG [Concomitant]

REACTIONS (1)
  - Diabetic ketoacidosis [None]

NARRATIVE: CASE EVENT DATE: 20180517
